FAERS Safety Report 5676370-3 (Version None)
Quarter: 2008Q1

REPORT INFORMATION
  Report Type: 
  Country: None (occurrence: None)
  Receive Date: 20080321
  Receipt Date: 20080312
  Transmission Date: 20080703
  Serious: Yes (Death, Life-Threatening, Other)
  Sender: FDA-Public Use
  Company Number: US-PFIZER INC-2008023192

PATIENT
  Age: 58 Year
  Sex: Male
  Weight: 113.4 kg

DRUGS (3)
  1. GABAPENTIN [Suspect]
     Indication: NEUROPATHY PERIPHERAL
  2. LYRICA [Suspect]
     Indication: NEUROPATHY PERIPHERAL
  3. GLUCOVANCE [Concomitant]
     Indication: DIABETES MELLITUS

REACTIONS (3)
  - DIABETIC COMPLICATION [None]
  - DRUG INEFFECTIVE [None]
  - WEIGHT INCREASED [None]
